FAERS Safety Report 4820989-6 (Version None)
Quarter: 2005Q4

REPORT INFORMATION
  Report Type: 
  Country: None (occurrence: None)
  Receive Date: 20051104
  Receipt Date: 20050523
  Transmission Date: 20060501
  Serious: Yes (Hospitalization)
  Sender: FDA-Public Use
  Company Number: 200514470US

PATIENT
  Age: 63 Year
  Sex: Male
  Weight: 83.6 kg

DRUGS (2)
  1. CARAC [Suspect]
     Indication: ACTINIC KERATOSIS
     Dosage: DOSE: UNK
     Dates: start: 20050414, end: 20050418
  2. LIDEX [Concomitant]

REACTIONS (5)
  - ERYTHEMA [None]
  - FOLLICULITIS [None]
  - OEDEMA [None]
  - RASH PUSTULAR [None]
  - SWELLING FACE [None]
